FAERS Safety Report 5619094-0 (Version None)
Quarter: 2008Q1

REPORT INFORMATION
  Report Type: 
  Country: None (occurrence: None)
  Receive Date: 20080207
  Receipt Date: 20080201
  Transmission Date: 20080703
  Serious: Yes (Hospitalization)
  Sender: FDA-Public Use
  Company Number: US-PFIZER INC-2008010722

PATIENT
  Age: 55 Year
  Sex: Female

DRUGS (1)
  1. VISTARIL (IM) [Suspect]
     Route: 042

REACTIONS (1)
  - MEDICATION ERROR [None]
